FAERS Safety Report 8520814-6 (Version None)
Quarter: 2012Q3

REPORT INFORMATION
  Report Type: 
  Country: None (occurrence: None)
  Receive Date: 20120719
  Receipt Date: 20120711
  Transmission Date: 20120928
  Serious: Yes (Other)
  Sender: FDA-Public Use
  Company Number: CA-JNJFOC-20120705708

PATIENT
  Sex: Female
  Weight: 57.27 kg

DRUGS (2)
  1. REMICADE [Suspect]
     Indication: CROHN'S DISEASE
     Dosage: SECOND RESTART OF INFLIXIMAB
     Route: 042
     Dates: start: 20110609
  2. REMICADE [Suspect]
     Dosage: 3 DOSES ABOUT 2 YEARS AGO
     Route: 042

REACTIONS (1)
  - LUPUS-LIKE SYNDROME [None]
